FAERS Safety Report 6042847-4 (Version None)
Quarter: 2009Q1

REPORT INFORMATION
  Report Type: 
  Country: None (occurrence: None)
  Receive Date: 20090119
  Receipt Date: 20080923
  Transmission Date: 20090719
  Serious: Yes (Hospitalization)
  Sender: FDA-Public Use
  Company Number: GB-ABBOTT-09P-167-0498026-00

PATIENT
  Sex: Male

DRUGS (1)
  1. ERYTHROCIN [Suspect]
     Indication: DRUG USE FOR UNKNOWN INDICATION
     Dates: start: 20080919

REACTIONS (2)
  - MALAISE [None]
  - VOMITING [None]
